FAERS Safety Report 19077636 (Version 1)
Quarter: 2021Q1

REPORT INFORMATION
  Report Type: Spontaneous
  Country: CN (occurrence: CN)
  Receive Date: 20210331
  Receipt Date: 20210331
  Transmission Date: 20210420
  Serious: Yes (Other)
  Sender: FDA-Public Use
  Company Number: CN-ROCHE-2795216

PATIENT
  Age: 49 Year
  Sex: Female
  Weight: 47 kg

DRUGS (8)
  1. CARBOPLATIN. [Concomitant]
     Active Substance: CARBOPLATIN
     Indication: BREAST CANCER
     Dates: start: 20200324
  2. HERCEPTIN [Suspect]
     Active Substance: TRASTUZUMAB
     Dosage: TCBHP; HP
     Route: 065
     Dates: start: 20200409
  3. PERJETA [Suspect]
     Active Substance: PERTUZUMAB
     Indication: BREAST CANCER
     Route: 065
     Dates: start: 20200324
  4. CARBOPLATIN. [Concomitant]
     Active Substance: CARBOPLATIN
     Dates: start: 20200409
  5. PERJETA [Suspect]
     Active Substance: PERTUZUMAB
     Dosage: TCBHP; HP
     Route: 065
     Dates: start: 20200409
  6. PACLITAXEL. [Concomitant]
     Active Substance: PACLITAXEL
     Indication: BREAST CANCER
     Dates: start: 20200324
  7. HERCEPTIN [Suspect]
     Active Substance: TRASTUZUMAB
     Indication: BREAST CANCER
     Route: 065
     Dates: start: 20200324
  8. PACLITAXEL. [Concomitant]
     Active Substance: PACLITAXEL
     Dates: start: 20200409

REACTIONS (1)
  - Haematotoxicity [Unknown]
